FAERS Safety Report 8592029-7 (Version None)
Quarter: 2012Q3

REPORT INFORMATION
  Report Type: 
  Country: None (occurrence: None)
  Receive Date: 20120814
  Receipt Date: 20120808
  Transmission Date: 20120928
  Serious: Yes (Death)
  Sender: FDA-Public Use
  Company Number: PHHY2012JP064037

PATIENT
  Sex: Female
  Weight: 81 kg

DRUGS (18)
  1. LORAZEPAM [Concomitant]
     Dosage: 1 DF, UNK
     Route: 048
  2. NSAID'S [Concomitant]
     Indication: BACK PAIN
  3. OXYCODONE HYDROCHLORIDE [Concomitant]
     Indication: BACK PAIN
     Dosage: 10 MG, DAILY
  4. OXYCODONE HYDROCHLORIDE [Concomitant]
     Dosage: 40 MG, UNK
  5. TS 1 [Concomitant]
     Indication: GASTRIC CANCER STAGE IV
     Route: 048
  6. CISPLATIN [Concomitant]
     Indication: GASTRIC CANCER STAGE IV
  7. TOPOTECAN [Concomitant]
     Indication: GASTRIC CANCER STAGE IV
  8. S-1+CDDP [Concomitant]
     Indication: GASTRIC CANCER STAGE IV
  9. LOXOPROFEN [Concomitant]
     Indication: PAIN
     Dosage: 180 MG, TID
     Route: 048
  10. FENTANYL [Concomitant]
     Indication: PAIN
     Dosage: 5 MG, UNK
  11. DICLOFENAC SODIUM [Concomitant]
     Indication: NEURALGIA
     Dosage: 100 MG, DAILY
  12. FENTANYL [Concomitant]
     Dosage: 7.5 MG, UNK
  13. FENTANYL [Concomitant]
     Dosage: 10 MG, UNK
  14. MORPHINE HCL ELIXIR [Concomitant]
     Indication: PAIN
  15. TEGRETOL [Suspect]
     Indication: NEURALGIA
     Dosage: 200 MG, DAILY
     Route: 048
     Dates: start: 20111124, end: 20120124
  16. OMEPRAZOLE [Concomitant]
  17. FENTANYL [Concomitant]
     Dosage: 15 MG, UNK
  18. OXYCODONE HYDROCHLORIDE [Concomitant]
     Dosage: 80 MG, UNK

REACTIONS (2)
  - SOMNOLENCE [None]
  - PNEUMONIA [None]
